FAERS Safety Report 13945282 (Version 4)
Quarter: 2018Q1

REPORT INFORMATION
  Report Type: Spontaneous
  Country: IT (occurrence: IT)
  Receive Date: 20170907
  Receipt Date: 20180306
  Transmission Date: 20180508
  Serious: Yes (Hospitalization)
  Sender: FDA-Public Use
  Company Number: IT-PFIZER INC-2017379748

PATIENT
  Age: 28 Year
  Sex: Female

DRUGS (3)
  1. HALCION [Suspect]
     Active Substance: TRIAZOLAM
     Indication: DEPRESSED MOOD
     Dosage: 10 DF, TOTAL
     Route: 048
     Dates: start: 20170828, end: 20170828
  2. ALPRAZOLAM. [Suspect]
     Active Substance: ALPRAZOLAM
     Indication: DEPRESSION
     Dosage: 20 GTT, TOTAL
     Route: 048
     Dates: start: 20170828, end: 20170828
  3. CIPRALEX [Suspect]
     Active Substance: ESCITALOPRAM OXALATE
     Indication: DEPRESSED MOOD
     Dosage: 15 GTT, TOTAL
     Route: 048
     Dates: start: 20170828, end: 20170828

REACTIONS (5)
  - Hypotension [Recovered/Resolved]
  - Alcohol abuse [Recovered/Resolved]
  - Coma [Recovered/Resolved]
  - Drug abuse [Recovered/Resolved]
  - Intentional self-injury [Recovered/Resolved]

NARRATIVE: CASE EVENT DATE: 20170829
